FAERS Safety Report 13360681 (Version 1)
Quarter: 2017Q1

REPORT INFORMATION
  Report Type: Spontaneous
  Country: GR (occurrence: GR)
  Receive Date: 20170322
  Receipt Date: 20170322
  Transmission Date: 20170429
  Serious: Yes (Death, Other)
  Sender: FDA-Public Use
  Company Number: GR-SA-2017SA045547

PATIENT
  Age: 44 Year
  Sex: Male

DRUGS (2)
  1. DOCETAXEL. [Suspect]
     Active Substance: DOCETAXEL
     Indication: NON-SMALL CELL LUNG CANCER
     Route: 065
     Dates: start: 201108, end: 201108
  2. DOCETAXEL. [Suspect]
     Active Substance: DOCETAXEL
     Indication: NON-SMALL CELL LUNG CANCER
     Route: 065
     Dates: start: 201104, end: 201104

REACTIONS (2)
  - Electrocardiogram QT prolonged [Unknown]
  - Neoplasm progression [Fatal]

NARRATIVE: CASE EVENT DATE: 2012
